FAERS Safety Report 9895155 (Version 2)
Quarter: 2014Q1

REPORT INFORMATION
  Report Type: Spontaneous
  Country: US (occurrence: US)
  Receive Date: 20140213
  Receipt Date: 20140213
  Transmission Date: 20141002
  Serious: No
  Sender: FDA-Public Use
  Company Number: US-BRISTOL-MYERS SQUIBB COMPANY-18920066

PATIENT
  Age: 72 Year
  Sex: Female
  Weight: 47.62 kg

DRUGS (6)
  1. ABATACEPT SUBQ INJECTION 125MG/ML [Suspect]
     Indication: RHEUMATOID ARTHRITIS
     Dosage: LAST INJ 3 WKS AGO?PRESCRIPTION 10-175298?1DF:125MG/ML?RESTART 29MAY13
     Route: 058
  2. PREDNISONE [Concomitant]
     Route: 048
  3. PLAVIX [Concomitant]
     Route: 048
  4. PROBIOTICA [Concomitant]
  5. PRILOSEC [Concomitant]
     Route: 048
  6. ACETYLSALICYLIC ACID [Concomitant]

REACTIONS (2)
  - Rash macular [Unknown]
  - Contusion [Unknown]
